FAERS Safety Report 4284692-6 (Version None)
Quarter: 2004Q1

REPORT INFORMATION
  Report Type: 
  Country: None (occurrence: None)
  Receive Date: 20040130
  Receipt Date: 20040121
  Transmission Date: 20041129
  Serious: Yes (Hospitalization)
  Sender: FDA-Public Use
  Company Number: 2004-01-1481

PATIENT
  Age: 24 Year
  Sex: Male

DRUGS (2)
  1. QVAR AUTOHALER HFA (BECLOMETHASONE BIPROPIONATE) ORAL AEROSOL 'LIKE  V [Suspect]
     Indication: ASTHMA
     Dosage: 800 MCG QD ORAL AER INH
     Route: 055
     Dates: start: 20031101, end: 20031128
  2. FLUTIDE (FLUTICASONE PROPIONATE) ORAL AEROSOL [Suspect]
     Indication: ASTHMA
     Dosage: ORAL AER INH

REACTIONS (7)
  - BRONCHIOLITIS [None]
  - ERYTHEMA [None]
  - HYPERSENSITIVITY [None]
  - LUNG NEOPLASM [None]
  - PNEUMONIA [None]
  - PULMONARY TUBERCULOSIS [None]
  - PYREXIA [None]
